FAERS Safety Report 19398977 (Version 1)
Quarter: 2021Q2

REPORT INFORMATION
  Report Type: Spontaneous
  Country: US (occurrence: US)
  Receive Date: 20210610
  Receipt Date: 20210610
  Transmission Date: 20210717
  Serious: No
  Sender: FDA-Public Use
  Company Number: None

PATIENT
  Age: 61 Year
  Sex: Female
  Weight: 69.8 kg

DRUGS (2)
  1. CARBOPLATIN. [Suspect]
     Active Substance: CARBOPLATIN
     Dates: end: 20210517
  2. TAXOL [Suspect]
     Active Substance: PACLITAXEL
     Dates: end: 20210517

REACTIONS (3)
  - White blood cell count decreased [None]
  - Toxicity to various agents [None]
  - Procedural pain [None]

NARRATIVE: CASE EVENT DATE: 20210426
